FAERS Safety Report 5789460-1 (Version None)
Quarter: 2008Q2

REPORT INFORMATION
  Report Type: 
  Country: None (occurrence: None)
  Receive Date: 20080626
  Receipt Date: 20080124
  Transmission Date: 20081010
  Serious: No
  Sender: FDA-Public Use
  Company Number: US-ASTRAZENECA-2008UW01772

PATIENT
  Age: 58 Year
  Sex: Female

DRUGS (7)
  1. PULMICORT FLEXHALER [Suspect]
     Indication: HYPERSENSITIVITY
     Route: 055
  2. MAXAIR [Concomitant]
  3. HYDROCORTISONE [Concomitant]
  4. MUCINEX [Concomitant]
  5. PRILOSEC [Concomitant]
  6. XANAX [Concomitant]
  7. LEVAQUIN [Concomitant]
     Indication: SINUSITIS

REACTIONS (2)
  - RESPIRATORY TRACT CONGESTION [None]
  - WHEEZING [None]
